FAERS Safety Report 12978352 (Version 1)
Quarter: 2016Q4

REPORT INFORMATION
  Report Type: Spontaneous
  Country: US (occurrence: US)
  Receive Date: 20161128
  Receipt Date: 20161128
  Transmission Date: 20170207
  Serious: Yes (Death, Hospitalization, Other)
  Sender: FDA-Public Use
  Company Number: US-009507513-1611USA010906

PATIENT
  Sex: Male

DRUGS (1)
  1. NOXAFIL [Suspect]
     Active Substance: POSACONAZOLE
     Dosage: UNK

REACTIONS (4)
  - Myelodysplastic syndrome [Unknown]
  - Graft versus host disease [Unknown]
  - Transplantation complication [Fatal]
  - Transplant [Unknown]

NARRATIVE: CASE EVENT DATE: 2016
